FAERS Safety Report 4536617-3 (Version None)
Quarter: 2004Q4

REPORT INFORMATION
  Report Type: 
  Country: None (occurrence: None)
  Receive Date: 20041223
  Receipt Date: 20041216
  Transmission Date: 20050328
  Serious: Yes (Hospitalization)
  Sender: FDA-Public Use
  Company Number: 200419659US

PATIENT
  Sex: Male

DRUGS (2)
  1. LOVENOX [Suspect]
     Indication: DEEP VENOUS THROMBOSIS PROPHYLAXIS
  2. ANAESTHETICS [Concomitant]
     Dosage: DOSE: UNK

REACTIONS (2)
  - EXTRADURAL HAEMATOMA [None]
  - PARAPLEGIA [None]
